FAERS Safety Report 9693302 (Version 2)
Quarter: 2013Q4

REPORT INFORMATION
  Report Type: Spontaneous
  Country: US (occurrence: None)
  Receive Date: 20131114
  Receipt Date: 20131127
  Transmission Date: 20140711
  Serious: Yes (Other)
  Sender: FDA-Public Use
  Company Number: 2013-US-002778

PATIENT
  Age: 14 Year
  Sex: 0

DRUGS (2)
  1. XYREM [Suspect]
     Indication: NARCOLEPSY
     Route: 048
     Dates: start: 201310, end: 20131027
  2. XYREM [Suspect]
     Indication: CATAPLEXY
     Route: 048
     Dates: start: 201310, end: 20131027

REACTIONS (5)
  - Convulsion [None]
  - Initial insomnia [None]
  - Cataplexy [None]
  - Somnambulism [None]
  - Vomiting [None]
